FAERS Safety Report 7716798-0 (Version None)
Quarter: 2011Q3

REPORT INFORMATION
  Report Type: 
  Country: None (occurrence: None)
  Receive Date: 20110829
  Receipt Date: 20110816
  Transmission Date: 20111222
  Serious: Yes (Other)
  Sender: FDA-Public Use
  Company Number: GB-MYLANLABS-2011S1017025

PATIENT
  Age: 71 Year
  Sex: Male

DRUGS (4)
  1. ASPIRIN [Suspect]
     Indication: TYPE 2 DIABETES MELLITUS
  2. SIMAVASTATIN [Suspect]
     Indication: HYPERCHOLESTEROLAEMIA
  3. METFORMIN HYDROCHLORIDE [Suspect]
     Indication: TYPE 2 DIABETES MELLITUS
  4. RAMIPRIL [Suspect]
     Indication: TYPE 2 DIABETES MELLITUS

REACTIONS (1)
  - NAEVUS FLAMMEUS [None]
